FAERS Safety Report 13522089 (Version 1)
Quarter: 2017Q2

REPORT INFORMATION
  Report Type: Spontaneous
  Country: US (occurrence: US)
  Receive Date: 20170508
  Receipt Date: 20170508
  Transmission Date: 20170830
  Serious: Yes (Hospitalization)
  Sender: FDA-Public Use
  Company Number: None

PATIENT
  Age: 70 Year
  Sex: Female
  Weight: 59.02 kg

DRUGS (1)
  1. PROPOFOL. [Suspect]
     Active Substance: PROPOFOL

REACTIONS (9)
  - Headache [None]
  - Cough [None]
  - Dizziness [None]
  - Chills [None]
  - Nausea [None]
  - Post procedural complication [None]
  - Pneumonia aspiration [None]
  - Seizure [None]
  - Choking [None]

NARRATIVE: CASE EVENT DATE: 20170413
